FAERS Safety Report 17370414 (Version 1)
Quarter: 2020Q1

REPORT INFORMATION
  Report Type: Report from Study
  Country: GB (occurrence: GB)
  Receive Date: 20200205
  Receipt Date: 20200205
  Transmission Date: 20200409
  Serious: Yes (Hospitalization)
  Sender: FDA-Public Use
  Company Number: GB-AMGEN-GBRSL2020017734

PATIENT
  Age: 68 Year
  Sex: Male

DRUGS (1)
  1. AMGEVITA [Suspect]
     Active Substance: ADALIMUMAB
     Indication: RHEUMATOID ARTHRITIS
     Dosage: 40 MILLIGRAM, Q2WK
     Route: 065

REACTIONS (3)
  - Chest discomfort [Unknown]
  - Lung disorder [Unknown]
  - Oxygen saturation decreased [Unknown]

NARRATIVE: CASE EVENT DATE: 201912
